FAERS Safety Report 10177101 (Version 4)
Quarter: 2014Q2

REPORT INFORMATION
  Report Type: Spontaneous
  Country: JP (occurrence: JP)
  Receive Date: 20140516
  Receipt Date: 20140619
  Transmission Date: 20141212
  Serious: Yes (Hospitalization)
  Sender: FDA-Public Use
  Company Number: JP-ABBVIE-14P-087-1238065-00

PATIENT
  Age: 39 Year
  Sex: Male
  Weight: 54.6 kg

DRUGS (9)
  1. KLARICID [Suspect]
     Indication: TUBERCULOSIS
     Route: 048
     Dates: start: 20120928, end: 201301
  2. GRACEVIT [Suspect]
     Indication: TUBERCULOSIS
     Route: 048
     Dates: start: 201109
  3. TUBERACTIN [Suspect]
     Indication: TUBERCULOSIS
     Route: 030
     Dates: start: 201202
  4. ZYVOX [Suspect]
     Indication: TUBERCULOSIS
     Route: 048
     Dates: start: 20120808
  5. AUGMENTIN [Suspect]
     Indication: TUBERCULOSIS
     Route: 048
     Dates: start: 20120830
  6. PASETOCIN [Suspect]
     Indication: TUBERCULOSIS
     Route: 048
     Dates: start: 20120830, end: 201301
  7. ISCOTIN [Suspect]
     Indication: TUBERCULOSIS
     Route: 048
     Dates: start: 20120808, end: 201301
  8. TIENAM [Suspect]
     Indication: TUBERCULOSIS
     Route: 042
     Dates: start: 20121102, end: 201301
  9. LAMPREN [Suspect]
     Indication: TUBERCULOSIS
     Route: 048
     Dates: start: 20121213

REACTIONS (6)
  - Inappropriate antidiuretic hormone secretion [Recovered/Resolved]
  - Vomiting [Recovered/Resolved]
  - Vomiting [Recovered/Resolved]
  - Hepatic function abnormal [Recovering/Resolving]
  - Nausea [Recovered/Resolved]
  - Gastrointestinal disorder [Recovering/Resolving]
